FAERS Safety Report 7830295-3 (Version None)
Quarter: 2011Q4

REPORT INFORMATION
  Report Type: 
  Country: None (occurrence: None)
  Receive Date: 20111021
  Receipt Date: 20111017
  Transmission Date: 20120403
  Serious: Yes (Life-Threatening, Disabling, Congenital Anomaly, Other)
  Sender: FDA-Public Use
  Company Number: US-SANOFI-AVENTIS-2011SA032995

PATIENT
  Age: 56 Year
  Sex: Female

DRUGS (7)
  1. CYCLOPHOSPHAMIDE [Suspect]
     Indication: BREAST CANCER
     Dates: start: 20021014, end: 20021014
  2. ATIVAN [Concomitant]
     Dates: start: 20021025
  3. DOCETAXEL [Suspect]
     Indication: BREAST CANCER
     Route: 041
     Dates: start: 20030123, end: 20030123
  4. DOXORUBICIN HCL [Suspect]
     Dates: start: 20030102, end: 20030102
  5. CYCLOPHOSPHAMIDE [Suspect]
     Dates: start: 20030102, end: 20030102
  6. DOCETAXEL [Suspect]
     Route: 041
     Dates: start: 20030328, end: 20030328
  7. DOXORUBICIN HCL [Suspect]
     Indication: BREAST CANCER
     Dates: start: 20021014, end: 20021014

REACTIONS (1)
  - CHRONIC MYELOID LEUKAEMIA [None]
